FAERS Safety Report 23854841 (Version 1)
Quarter: 2024Q2

REPORT INFORMATION
  Report Type: Spontaneous
  Country: BE (occurrence: BE)
  Receive Date: 20240514
  Receipt Date: 20240514
  Transmission Date: 20240716
  Serious: No
  Sender: FDA-Public Use
  Company Number: US-BoehringerIngelheim-2023-BI-277079

PATIENT
  Sex: Female

DRUGS (1)
  1. TELMISARTAN [Suspect]
     Active Substance: TELMISARTAN
     Indication: Product used for unknown indication
     Dosage: FORM STRENGTH: 4 MILLIGRAM PER MILLILITRE
     Route: 031
     Dates: start: 20230830

REACTIONS (1)
  - Abnormal sensation in eye [Unknown]

NARRATIVE: CASE EVENT DATE: 20230830
